FAERS Safety Report 7815447-0 (Version None)
Quarter: 2011Q4

REPORT INFORMATION
  Report Type: 
  Country: None (occurrence: None)
  Receive Date: 20111014
  Receipt Date: 20111003
  Transmission Date: 20120403
  Serious: Yes (Hospitalization)
  Sender: FDA-Public Use
  Company Number: PHHY2010MX88679

PATIENT
  Sex: Male

DRUGS (12)
  1. FLUTICASONE PROPIONATE/SALMETEROL [Concomitant]
  2. SENOSIDOS [Concomitant]
  3. SYMBICORT [Concomitant]
  4. BUDESONIDE [Concomitant]
  5. RESPIMAT [Concomitant]
  6. SPIRIVA [Concomitant]
  7. LOSARTAN POTASSIUM [Concomitant]
  8. COMBIVENT [Concomitant]
  9. AMLODIPINE [Concomitant]
  10. TYLENOL-500 [Concomitant]
  11. ONBREZ [Suspect]
     Indication: CHRONIC OBSTRUCTIVE PULMONARY DISEASE
     Dosage: 150 UG, QD
     Dates: start: 20101214, end: 20101224
  12. METFORMIN HYDROCHLORIDE [Concomitant]

REACTIONS (10)
  - VOMITING [None]
  - DYSPNOEA [None]
  - GAIT DISTURBANCE [None]
  - NAUSEA [None]
  - CHRONIC OBSTRUCTIVE PULMONARY DISEASE [None]
  - WHEEZING [None]
  - CONTUSION [None]
  - SKIN DISCOLOURATION [None]
  - HEADACHE [None]
  - PALLOR [None]
